FAERS Safety Report 7797548-9 (Version None)
Quarter: 2011Q4

REPORT INFORMATION
  Report Type: 
  Country: None (occurrence: None)
  Receive Date: 20111005
  Receipt Date: 20110929
  Transmission Date: 20120403
  Serious: Yes (Hospitalization, Other)
  Sender: FDA-Public Use
  Company Number: BR-SANOFI-AVENTIS-2011SA064221

PATIENT
  Sex: Male
  Weight: 96 kg

DRUGS (11)
  1. CLORANA [Concomitant]
     Indication: BLOOD PRESSURE
     Route: 048
  2. APRESOLINE [Concomitant]
     Indication: BLOOD PRESSURE
     Route: 048
  3. LASIX [Concomitant]
     Indication: RENAL DISORDER
     Route: 048
  4. AUTOPEN 24 [Suspect]
     Indication: TYPE 2 DIABETES MELLITUS
  5. SUSTRATE [Concomitant]
     Route: 048
  6. LANTUS [Suspect]
     Indication: TYPE 2 DIABETES MELLITUS
     Route: 058
  7. HUMALOG [Concomitant]
     Indication: TYPE 2 DIABETES MELLITUS
  8. NIFEDIPINE [Concomitant]
     Indication: BLOOD PRESSURE
     Route: 048
  9. ALDOMET [Concomitant]
     Indication: BLOOD PRESSURE
     Route: 048
  10. SIMVASTATIN [Concomitant]
     Indication: CARDIAC DISORDER
     Route: 048
  11. ALPHAGAN [Concomitant]
     Indication: DIABETIC RETINOPATHY
     Dates: start: 20070101

REACTIONS (7)
  - MYOCARDIAL INFARCTION [None]
  - RENAL DISORDER [None]
  - VISUAL IMPAIRMENT [None]
  - THROMBOSIS [None]
  - PULMONARY OEDEMA [None]
  - DIARRHOEA [None]
  - RETINOPATHY [None]
